FAERS Safety Report 4955920-6 (Version None)
Quarter: 2006Q1

REPORT INFORMATION
  Report Type: 
  Country: None (occurrence: None)
  Receive Date: 20060328
  Receipt Date: 20060221
  Transmission Date: 20060701
  Serious: Yes (Hospitalization)
  Sender: FDA-Public Use
  Company Number: DE-BOEHRINGER INGELHEIM PHARMACEUTICALS, INC.-2006-DE-00984DE

PATIENT
  Weight: 72 kg

DRUGS (3)
  1. MICARDIS [Suspect]
     Indication: HYPERTENSION
     Route: 048
     Dates: start: 20050813
  2. AQUAPHOR [Concomitant]
     Indication: HYPERTENSION
     Route: 048
  3. METOBETA [Concomitant]
     Indication: HYPERTENSION
     Route: 048

REACTIONS (4)
  - EMBOLIC CEREBRAL INFARCTION [None]
  - FACIAL PARESIS [None]
  - INFARCTION [None]
  - SPEECH DISORDER [None]
